FAERS Safety Report 9682757 (Version 1)
Quarter: 2013Q4

REPORT INFORMATION
  Report Type: Spontaneous
  Country: US (occurrence: US)
  Receive Date: 20131112
  Receipt Date: 20131112
  Transmission Date: 20140711
  Serious: Yes (Other)
  Sender: FDA-Public Use
  Company Number: US-MERCK-1311USA001668

PATIENT
  Sex: Female

DRUGS (1)
  1. FOSAMAX [Suspect]
     Indication: OSTEOPOROSIS
     Dosage: UNK
     Route: 048

REACTIONS (1)
  - Femur fracture [Unknown]
